FAERS Safety Report 20822906 (Version 2)
Quarter: 2022Q2

REPORT INFORMATION
  Report Type: Spontaneous
  Country: JP (occurrence: JP)
  Receive Date: 20220512
  Receipt Date: 20220609
  Transmission Date: 20220721
  Serious: Yes (Hospitalization)
  Sender: FDA-Public Use
  Company Number: JP-TAKEDA-2022TJP010338

PATIENT
  Age: 5 Decade
  Sex: Female

DRUGS (1)
  1. ENTYVIO [Suspect]
     Active Substance: VEDOLIZUMAB
     Indication: Crohn^s disease
     Dosage: 300 MILLIGRAM
     Route: 041
     Dates: start: 20220106

REACTIONS (3)
  - Liver disorder [Recovered/Resolved]
  - Pyrexia [Recovered/Resolved]
  - Taste disorder [Unknown]

NARRATIVE: CASE EVENT DATE: 20220106
